FAERS Safety Report 8157958-7 (Version None)
Quarter: 2012Q1

REPORT INFORMATION
  Report Type: 
  Country: None (occurrence: None)
  Receive Date: 20120222
  Receipt Date: 20120215
  Transmission Date: 20120608
  Serious: Yes (Hospitalization)
  Sender: FDA-Public Use
  Company Number: PHFR2011IE006984

PATIENT
  Sex: Male

DRUGS (3)
  1. CLOZARIL [Suspect]
     Route: 048
  2. CLOZARIL [Suspect]
     Dosage: RESTARTED ON AN TITRATING DOSE
     Route: 048
     Dates: end: 20120106
  3. CLOZARIL [Suspect]
     Indication: SCHIZOPHRENIA
     Dosage: 200 MG, BID
     Route: 048
     Dates: start: 19961007, end: 20111206

REACTIONS (6)
  - ISCHAEMIC CARDIOMYOPATHY [None]
  - CHEST PAIN [None]
  - CORONARY ARTERY DISEASE [None]
  - DYSPNOEA [None]
  - ANGINA PECTORIS [None]
  - SCHIZOPHRENIA [None]
